FAERS Safety Report 13360642 (Version 4)
Quarter: 2017Q3

REPORT INFORMATION
  Report Type: Report from Study
  Country: None (occurrence: BE)
  Receive Date: 20170322
  Receipt Date: 20170906
  Transmission Date: 20171127
  Serious: Yes (Other)
  Sender: FDA-Public Use
  Company Number: BE-ABBVIE-17P-013-1910234-00

PATIENT
  Sex: Male
  Weight: 78 kg

DRUGS (6)
  1. DUODOPA [Suspect]
     Active Substance: CARBIDOPA\LEVODOPA
     Indication: PARKINSON^S DISEASE
     Dosage: AM: 10 ML??CD: 4.1 ML/HR DURING 16 HRS??ED: 4 ML
     Route: 050
     Dates: start: 20130527, end: 20130712
  2. DUODOPA [Suspect]
     Active Substance: CARBIDOPA\LEVODOPA
     Dosage: AM: 4 ML, CD: 4 ML/HR DURING 16 HRS, ED: 4 ML, ND: 1.8 ML/HR DURING 8 HRS
     Route: 050
     Dates: start: 20170324, end: 20170329
  3. DUODOPA [Suspect]
     Active Substance: CARBIDOPA\LEVODOPA
     Dosage: DOSE CONTINUOUSLY MONITORED AND ADAPTED
     Route: 050
     Dates: start: 20130712, end: 20160331
  4. DUODOPA [Suspect]
     Active Substance: CARBIDOPA\LEVODOPA
     Dosage: AM: 4 ML, CD: 4 ML/HR DURING 16 HRS, ED: 4 ML, ND: 1.5 ML/HR DURING 8 HRS
     Route: 050
     Dates: start: 20170315, end: 20170324
  5. DUODOPA [Suspect]
     Active Substance: CARBIDOPA\LEVODOPA
     Dosage: AM: 4 ML??CD: 3.9 ML/HR DURING 16 HRS??ED: 4 ML
     Route: 050
     Dates: start: 20160331
  6. DUODOPA [Suspect]
     Active Substance: CARBIDOPA\LEVODOPA
     Dosage: AM= 4 ML, CD= 4 ML/H DURING 16 HRS; ED= 4 ML
     Route: 050
     Dates: start: 20170329

REACTIONS (6)
  - Nocturia [Not Recovered/Not Resolved]
  - Insomnia [Unknown]
  - Dysstasia [Not Recovered/Not Resolved]
  - Gait disturbance [Not Recovered/Not Resolved]
  - Muscle rigidity [Unknown]
  - Prostate cancer [Not Recovered/Not Resolved]
